FAERS Safety Report 6385234-1 (Version None)
Quarter: 2009Q4

REPORT INFORMATION
  Report Type: 
  Country: None (occurrence: None)
  Receive Date: 20091002
  Receipt Date: 20080929
  Transmission Date: 20100525
  Serious: No
  Sender: FDA-Public Use
  Company Number: US-ASTRAZENECA-2008UW13145

PATIENT
  Sex: Female
  Weight: 54.4 kg

DRUGS (2)
  1. ARIMIDEX [Suspect]
     Indication: ENDOMETRIOSIS
     Dosage: 1 MG
     Route: 048
     Dates: start: 20080601
  2. ORAL CONTRACEPTIVE [Concomitant]

REACTIONS (4)
  - ABDOMINAL PAIN [None]
  - HEADACHE [None]
  - HYPOAESTHESIA [None]
  - NERVE COMPRESSION [None]
